FAERS Safety Report 5334367-7 (Version None)
Quarter: 2007Q2

REPORT INFORMATION
  Report Type: 
  Country: None (occurrence: None)
  Receive Date: 20070525
  Receipt Date: 20070516
  Transmission Date: 20071010
  Serious: Yes (Hospitalization, Disabling, Other)
  Sender: FDA-Public Use
  Company Number: PHBS2007JP06885

PATIENT
  Age: 12 Year
  Sex: Female

DRUGS (2)
  1. NEORAL [Suspect]
     Indication: NEPHROTIC SYNDROME
     Route: 048
  2. STEROIDS NOS [Concomitant]
     Indication: NEPHROTIC SYNDROME
     Dosage: PULSE

REACTIONS (12)
  - COAGULOPATHY [None]
  - DEEP VEIN THROMBOSIS [None]
  - DIPLOPIA [None]
  - DISEASE PROGRESSION [None]
  - HEADACHE [None]
  - NEPHROTIC SYNDROME [None]
  - PERITONEAL DIALYSIS [None]
  - PROTEINURIA [None]
  - RENAL FAILURE ACUTE [None]
  - SHOCK [None]
  - SUPERIOR SAGITTAL SINUS THROMBOSIS [None]
  - TRANSVERSE SINUS THROMBOSIS [None]
